FAERS Safety Report 7454389-X (Version None)
Quarter: 2011Q2

REPORT INFORMATION
  Report Type: 
  Country: None (occurrence: None)
  Receive Date: 20110503
  Receipt Date: 20110321
  Transmission Date: 20111010
  Serious: Yes (Other)
  Sender: FDA-Public Use
  Company Number: US-BAYER-2010-002074

PATIENT
  Age: 19 Year
  Sex: Female

DRUGS (2)
  1. YASMIN [Suspect]
     Dosage: UNK UNK, QD
     Route: 048
  2. YAZ [Suspect]
     Dosage: UNK UNK, QD
     Route: 048

REACTIONS (1)
  - THROMBOSIS [None]
